FAERS Safety Report 7579624-9 (Version None)
Quarter: 2011Q2

REPORT INFORMATION
  Report Type: 
  Country: None (occurrence: None)
  Receive Date: 20110629
  Receipt Date: 20110616
  Transmission Date: 20111010
  Serious: Yes (Hospitalization, Other)
  Sender: FDA-Public Use
  Company Number: US-BAYER-2011-016353

PATIENT
  Age: 27 Year
  Sex: Female
  Weight: 63.492 kg

DRUGS (2)
  1. MIRENA [Suspect]
     Dosage: UNK
     Dates: start: 20100830
  2. MIRENA [Suspect]
     Indication: CONTRACEPTION
     Dosage: 20 MCG/24HR, CONT
     Route: 015
     Dates: start: 20100408, end: 20110127

REACTIONS (2)
  - DEVICE DISLOCATION [None]
  - VAGINAL HAEMORRHAGE [None]
